FAERS Safety Report 4881392-6 (Version None)
Quarter: 2005Q4

REPORT INFORMATION
  Report Type: 
  Country: None (occurrence: None)
  Receive Date: 20051212
  Receipt Date: 20051006
  Transmission Date: 20060501
  Serious: No
  Sender: FDA-Public Use
  Company Number: 2005-02081

PATIENT
  Age: 76 Year
  Sex: Male
  Weight: 78.7 kg

DRUGS (14)
  1. VELCADE [Suspect]
     Indication: MULTIPLE MYELOMA
     Dosage: 1.00 MG/M2
     Dates: start: 20041004, end: 20050408
  2. VELCADE [Suspect]
     Indication: MULTIPLE MYELOMA
     Dosage: 1.00 MG/M2
     Dates: start: 20050829
  3. ZOMETA [Concomitant]
  4. QUININE SULFATE [Concomitant]
  5. DUTASTERIDE (DUTASTERIDE) [Concomitant]
  6. ALLEGRA [Concomitant]
  7. NASONEX [Concomitant]
  8. FORMULA 235 (GLUCOSE, PSYLLIUM) [Concomitant]
  9. MULTIVITAMINS (ERGOCALCIFEROL, PANTHENOL, NICOTINAMIDE, RIBOFLAVIN, TH [Concomitant]
  10. VITAMIN B6 [Concomitant]
  11. NAPROXEN [Concomitant]
  12. GLYCOLAX [Concomitant]
  13. COLACE (DOCUSATE SODIUM) [Concomitant]
  14. MILK OF MAGNESIA TAB [Concomitant]

REACTIONS (7)
  - ABDOMINAL DISTENSION [None]
  - ACTINIC KERATOSIS [None]
  - CHEST DISCOMFORT [None]
  - CONSTIPATION [None]
  - PURPURA [None]
  - SKIN INJURY [None]
  - SKIN ULCER [None]
